FAERS Safety Report 10539054 (Version 2)
Quarter: 2014Q4

REPORT INFORMATION
  Report Type: Spontaneous
  Country: GB (occurrence: GB)
  Receive Date: 20141023
  Receipt Date: 20141105
  Transmission Date: 20150529
  Serious: Yes (Disabling)
  Sender: FDA-Public Use
  Company Number: GB-009507513-1410GBR010452

PATIENT
  Sex: Female

DRUGS (1)
  1. ALENDRONATE SODIUM. [Suspect]
     Active Substance: ALENDRONATE SODIUM
     Indication: BONE DENSITY ABNORMAL
     Route: 065

REACTIONS (5)
  - Abasia [Unknown]
  - Myalgia [Not Recovered/Not Resolved]
  - Emotional distress [Unknown]
  - Bone pain [Not Recovered/Not Resolved]
  - Rash erythematous [Not Recovered/Not Resolved]
